FAERS Safety Report 15129981 (Version 1)
Quarter: 2018Q3

REPORT INFORMATION
  Report Type: Spontaneous
  Country: FR (occurrence: FR)
  Receive Date: 20180711
  Receipt Date: 20180711
  Transmission Date: 20181010
  Serious: Yes (Hospitalization, Other)
  Sender: FDA-Public Use
  Company Number: PHHY2018FR036966

PATIENT
  Age: 54 Year
  Sex: Female
  Weight: 90 kg

DRUGS (17)
  1. ALLOPURINOL. [Concomitant]
     Active Substance: ALLOPURINOL
     Indication: PRODUCT USED FOR UNKNOWN INDICATION
     Route: 048
  2. TRANXENE [Concomitant]
     Active Substance: CLORAZEPATE DIPOTASSIUM
     Indication: PRODUCT USED FOR UNKNOWN INDICATION
     Dosage: 3 ?G/L, UNK
     Route: 048
  3. UN?ALFA [Concomitant]
     Active Substance: ALFACALCIDOL
     Indication: PRODUCT USED FOR UNKNOWN INDICATION
     Dosage: 1 ?G/L, UNK
     Route: 048
  4. GUTRON [Concomitant]
     Active Substance: MIDODRINE
     Indication: PRODUCT USED FOR UNKNOWN INDICATION
     Dosage: 1 ?G/L, UNK
     Route: 048
  5. NOCTAMIDE [Concomitant]
     Active Substance: LORMETAZEPAM
     Indication: PRODUCT USED FOR UNKNOWN INDICATION
     Dosage: 1 ?G/L, UNK
     Route: 048
  6. DUPHALAC [Concomitant]
     Active Substance: LACTULOSE
     Indication: PRODUCT USED FOR UNKNOWN INDICATION
     Dosage: 2 ?G/L, UNK
     Route: 048
  7. LASILIX [Concomitant]
     Active Substance: FUROSEMIDE
     Indication: PRODUCT USED FOR UNKNOWN INDICATION
     Dosage: 3 ?G/L, UNK
     Route: 048
  8. AMOXICILLIN. [Suspect]
     Active Substance: AMOXICILLIN
     Indication: ESCHERICHIA PYELONEPHRITIS
     Dosage: 3 G
     Route: 048
     Dates: start: 20160406, end: 20160416
  9. TAHOR [Concomitant]
     Active Substance: ATORVASTATIN CALCIUM
     Indication: PRODUCT USED FOR UNKNOWN INDICATION
     Dosage: 1 ?G/L, UNK
     Route: 048
  10. FUMAFER [Concomitant]
     Active Substance: FERROUS FUMARATE
     Indication: PRODUCT USED FOR UNKNOWN INDICATION
     Dosage: 1 ?G/L, UNK
     Route: 048
  11. IMOVANE [Concomitant]
     Active Substance: ZOPICLONE
     Indication: PRODUCT USED FOR UNKNOWN INDICATION
     Dosage: 2 OT, UNK
     Route: 048
  12. SEROPLEX [Concomitant]
     Active Substance: ESCITALOPRAM OXALATE
     Indication: PRODUCT USED FOR UNKNOWN INDICATION
     Dosage: 1 ?G/L, UNK
     Route: 048
  13. HUMALOG [Concomitant]
     Active Substance: INSULIN LISPRO
     Indication: PRODUCT USED FOR UNKNOWN INDICATION
     Route: 058
  14. LEVOTHYROX [Concomitant]
     Active Substance: LEVOTHYROXINE
     Indication: PRODUCT USED FOR UNKNOWN INDICATION
     Route: 048
  15. ZYMAD [Concomitant]
     Active Substance: CHOLECALCIFEROL
     Indication: PRODUCT USED FOR UNKNOWN INDICATION
     Dosage: 1 ?G/L, UNK
     Route: 048
  16. DIFFU K [Concomitant]
     Active Substance: POTASSIUM CHLORIDE
     Indication: PRODUCT USED FOR UNKNOWN INDICATION
     Dosage: 3 ?G/L, UNK
     Route: 048
  17. LANTUS [Concomitant]
     Active Substance: INSULIN GLARGINE
     Indication: PRODUCT USED FOR UNKNOWN INDICATION
     Route: 058

REACTIONS (1)
  - Clostridium colitis [Recovered/Resolved]

NARRATIVE: CASE EVENT DATE: 20160416
